FAERS Safety Report 4506913-4 (Version None)
Quarter: 2004Q4

REPORT INFORMATION
  Report Type: 
  Country: None (occurrence: None)
  Receive Date: 20041117
  Receipt Date: 20041108
  Transmission Date: 20050328
  Serious: Yes (Hospitalization)
  Sender: FDA-Public Use
  Company Number: 2004090127

PATIENT
  Age: 53 Year
  Sex: Female

DRUGS (1)
  1. TORVAST (ATORVASTATIN) [Suspect]
     Indication: HYPERCHOLESTEROLAEMIA
     Dosage: 40 MG (1 IN 1 D), ORAL
     Route: 048
     Dates: start: 20040917, end: 20041010

REACTIONS (2)
  - HEPATITIS ACUTE [None]
  - HEPATITIS CHOLESTATIC [None]
